FAERS Safety Report 9902463 (Version 1)
Quarter: 2014Q1

REPORT INFORMATION
  Report Type: Spontaneous
  Country: FR (occurrence: FR)
  Receive Date: 20140217
  Receipt Date: 20140217
  Transmission Date: 20141002
  Serious: Yes (Hospitalization)
  Sender: FDA-Public Use
  Company Number: FR-JNJFOC-20140208322

PATIENT
  Age: 57 Year
  Sex: Female

DRUGS (3)
  1. IXPRIM [Suspect]
     Indication: PRODUCT USED FOR UNKNOWN INDICATION
     Dosage: 1 DF 8 TIMES DAILY
     Route: 048
     Dates: start: 201309, end: 20131114
  2. FANSIDAR [Suspect]
     Indication: PRODUCT USED FOR UNKNOWN INDICATION
     Route: 048
     Dates: start: 20131120, end: 20131120
  3. MOPRAL [Suspect]
     Indication: PRODUCT USED FOR UNKNOWN INDICATION
     Route: 048
     Dates: end: 20131121

REACTIONS (2)
  - Thrombocytopenia [Recovering/Resolving]
  - Overdose [Unknown]
